FAERS Safety Report 10752958 (Version 1)
Quarter: 2015Q1

REPORT INFORMATION
  Report Type: Spontaneous
  Country: US (occurrence: US)
  Receive Date: 20150130
  Receipt Date: 20150130
  Transmission Date: 20150721
  Serious: Yes (Other)
  Sender: FDA-Public Use
  Company Number: US-TARO-2015TAR00080

PATIENT
  Sex: Female
  Weight: 56.69 kg

DRUGS (4)
  1. PHENYTOIN SODIUM EXTENDED [Suspect]
     Active Substance: PHENYTOIN SODIUM
     Dosage: 150 MG, 2X/DAY
     Route: 048
     Dates: start: 1985, end: 2010
  2. PHENYTOIN SODIUM EXTENDED [Suspect]
     Active Substance: PHENYTOIN SODIUM
     Indication: SEIZURE
     Dosage: 200 MG, 2X/DAY
     Route: 048
     Dates: start: 2010
  3. KEPPRA [Concomitant]
     Active Substance: LEVETIRACETAM
  4. CLONAZEPAM. [Concomitant]
     Active Substance: CLONAZEPAM

REACTIONS (3)
  - Acrochordon [Not Recovered/Not Resolved]
  - Skin irritation [Not Recovered/Not Resolved]
  - Partial seizures [Unknown]

NARRATIVE: CASE EVENT DATE: 2010
